FAERS Safety Report 7182751-1 (Version None)
Quarter: 2010Q4

REPORT INFORMATION
  Report Type: 
  Country: None (occurrence: None)
  Receive Date: 20101221
  Receipt Date: 20100719
  Transmission Date: 20110411
  Serious: No
  Sender: FDA-Public Use
  Company Number: US-AMGEN-TCS411697

PATIENT

DRUGS (4)
  1. ENBREL [Suspect]
     Indication: RHEUMATOID ARTHRITIS
     Dosage: 50 MG, QWK
     Route: 058
     Dates: start: 20070815
  2. INSULIN GLARGINE [Concomitant]
  3. INSULIN LISPRO [Concomitant]
  4. MULTI-VITAMINS [Concomitant]

REACTIONS (3)
  - ARTHRALGIA [None]
  - CELLULITIS STAPHYLOCOCCAL [None]
  - JOINT STIFFNESS [None]
